FAERS Safety Report 18456959 (Version 4)
Quarter: 2022Q3

REPORT INFORMATION
  Report Type: Spontaneous
  Country: FR (occurrence: FR)
  Receive Date: 20201103
  Receipt Date: 20220713
  Transmission Date: 20221027
  Serious: Yes (Other)
  Sender: FDA-Public Use
  Company Number: FR-GSKCCFEMEA-CASE-01070919_AE-36123

PATIENT

DRUGS (1)
  1. ALBUTEROL [Suspect]
     Active Substance: ALBUTEROL
     Indication: Product used for unknown indication
     Dosage: UNK, 100MCG

REACTIONS (4)
  - Cardiac failure [Unknown]
  - Product dose omission issue [Unknown]
  - Extra dose administered [Unknown]
  - Product complaint [Unknown]
